FAERS Safety Report 5502992-6 (Version None)
Quarter: 2007Q4

REPORT INFORMATION
  Report Type: 
  Country: None (occurrence: None)
  Receive Date: 20071029
  Receipt Date: 20071029
  Transmission Date: 20080405
  Serious: Yes (Hospitalization)
  Sender: FDA-Public Use
  Company Number: None

PATIENT
  Age: 61 Year
  Sex: Female

DRUGS (1)
  1. GADOBENATE DIMEGLUMINE MULTIHANCE [Suspect]
     Indication: NUCLEAR MAGNETIC RESONANCE IMAGING
     Dosage: 16ML ONCE IV BOLUS
     Route: 040
     Dates: start: 20070804, end: 20070804

REACTIONS (4)
  - CONTRAST MEDIA REACTION [None]
  - ERYTHEMA [None]
  - PRURITUS [None]
  - URTICARIA [None]
